FAERS Safety Report 25089891 (Version 1)
Quarter: 2025Q1

REPORT INFORMATION
  Report Type: Spontaneous
  Country: US (occurrence: None)
  Receive Date: 20250317
  Receipt Date: 20250317
  Transmission Date: 20250409
  Serious: No
  Sender: FDA-CTU
  Company Number: None

PATIENT
  Age: 34 Year
  Sex: Female
  Weight: 71.1 kg

DRUGS (1)
  1. QULIPTA [Suspect]
     Active Substance: ATOGEPANT

REACTIONS (3)
  - Sleep disorder [None]
  - Abnormal dreams [None]
  - Depression [None]
